FAERS Safety Report 5871406-9 (Version None)
Quarter: 2008Q3

REPORT INFORMATION
  Report Type: 
  Country: None (occurrence: None)
  Receive Date: 20080905
  Receipt Date: 20080826
  Transmission Date: 20090109
  Serious: Yes (Other)
  Sender: FDA-Public Use
  Company Number: PHHY2008FR19220

PATIENT
  Sex: Female

DRUGS (8)
  1. LAMISIL [Suspect]
     Dosage: 250 MG PER DAY
     Dates: start: 20080226, end: 20080310
  2. AMOXICILLIN [Suspect]
     Indication: TOOTH DISORDER
     Dosage: UNK
     Dates: start: 20080430, end: 20080504
  3. OXAZEPAM [Concomitant]
     Dosage: 60 MG/DAY
  4. ZYPREXA [Concomitant]
     Dosage: 10 MG/DAY
  5. NOZINAN [Concomitant]
     Dosage: 80 DROPS/DAY
  6. ATARAX [Concomitant]
     Dosage: 200 MG/DAY
  7. PARKINANE LP [Concomitant]
     Dosage: 5 MG/DAY
  8. DIHYDROERGOTAMINE [Concomitant]
     Dosage: 90 DROPS/DAY

REACTIONS (7)
  - BILE DUCT STONE [None]
  - CERULOPLASMIN DECREASED [None]
  - CYTOLYTIC HEPATITIS [None]
  - HYPOALBUMINAEMIA [None]
  - LIVER INJURY [None]
  - SERUM FERRITIN INCREASED [None]
  - TOOTH DISORDER [None]
